FAERS Safety Report 14597684 (Version 2)
Quarter: 2018Q1

REPORT INFORMATION
  Report Type: Spontaneous
  Country: US (occurrence: US)
  Receive Date: 20180305
  Receipt Date: 20180313
  Transmission Date: 20180509
  Serious: Yes (Life-Threatening, Hospitalization, Other)
  Sender: FDA-Public Use
  Company Number: US-009507513-1802USA002986

PATIENT
  Sex: Male
  Weight: 63 kg

DRUGS (4)
  1. KEYTRUDA [Suspect]
     Active Substance: PEMBROLIZUMAB
     Indication: LUNG NEOPLASM MALIGNANT
     Dosage: UNK
     Route: 042
     Dates: start: 20171110
  2. LISINOPRIL. [Concomitant]
     Active Substance: LISINOPRIL
     Dosage: UNK
  3. FLOMAX [Concomitant]
     Active Substance: TAMSULOSIN HYDROCHLORIDE
  4. ASPIRIN. [Concomitant]
     Active Substance: ASPIRIN

REACTIONS (10)
  - Urinary incontinence [Not Recovered/Not Resolved]
  - Blood sodium decreased [Unknown]
  - Gait inability [Not Recovered/Not Resolved]
  - Movement disorder [Recovering/Resolving]
  - Encephalitis [Unknown]
  - Cardiac disorder [Unknown]
  - Fatigue [Unknown]
  - Pyrexia [Unknown]
  - Disorientation [Recovering/Resolving]
  - Dyspnoea [Unknown]

NARRATIVE: CASE EVENT DATE: 20171115
